FAERS Safety Report 8614295-1 (Version None)
Quarter: 2012Q3

REPORT INFORMATION
  Report Type: 
  Country: None (occurrence: None)
  Receive Date: 20120813
  Receipt Date: 20120813
  Transmission Date: 20120928
  Serious: No
  Sender: FDA-Public Use
  Company Number: None

PATIENT
  Age: 57 Year
  Sex: Female

DRUGS (1)
  1. XELODA [Suspect]
     Indication: NEOPLASM MALIGNANT
     Dosage: 1500MG BIDX14DAY PO
     Route: 048
     Dates: start: 20120521, end: 20120809

REACTIONS (3)
  - MALAISE [None]
  - MOVEMENT DISORDER [None]
  - DYSPEPSIA [None]
